FAERS Safety Report 7699881-8 (Version None)
Quarter: 2011Q3

REPORT INFORMATION
  Report Type: 
  Country: None (occurrence: None)
  Receive Date: 20110816
  Receipt Date: 20110803
  Transmission Date: 20111222
  Serious: Yes (Life-Threatening, Other)
  Sender: FDA-Public Use
  Company Number: MC201100324

PATIENT
  Age: 71 Year
  Sex: Female
  Weight: 112 kg

DRUGS (6)
  1. PLAVIX [Concomitant]
  2. ASPIRIN [Concomitant]
  3. UNSPECIFIED BP MEDS [Concomitant]
  4. ANGIOMAX [Suspect]
     Indication: PERCUTANEOUS CORONARY INTERVENTION
     Dosage: 0.75 MG/KG, BOLUS, FEM ACCESS PCI
     Route: 040
     Dates: start: 20110620, end: 20110620
  5. CHOLESTEROL- AND TRIGLYCERIDE REDUCERS [Concomitant]
  6. ASPIRIN [Concomitant]

REACTIONS (5)
  - CARDIAC ARREST [None]
  - CORONARY ARTERY OCCLUSION [None]
  - ATRIOVENTRICULAR BLOCK COMPLETE [None]
  - DYSPNOEA [None]
  - THROMBOSIS IN DEVICE [None]
